FAERS Safety Report 9819512 (Version 1)
Quarter: 2014Q1

REPORT INFORMATION
  Report Type: Spontaneous
  Country: US (occurrence: US)
  Receive Date: 20140115
  Receipt Date: 20140115
  Transmission Date: 20141002
  Serious: Yes (Other)
  Sender: FDA-Public Use
  Company Number: US-PFIZER INC-2014010035

PATIENT
  Age: 67 Year
  Sex: Female
  Weight: 67.57 kg

DRUGS (4)
  1. XELJANZ [Suspect]
     Indication: RHEUMATOID ARTHRITIS
     Dosage: 5 MG, 2X/DAY
     Dates: start: 201308
  2. XELJANZ [Suspect]
     Indication: PSORIATIC ARTHROPATHY
  3. TOPROL [Concomitant]
     Indication: HYPERTENSION
     Dosage: 25 MG, DAILY
  4. LOSARTAN [Concomitant]
     Indication: HYPERTENSION
     Dosage: 50 MG, 2X/DAY

REACTIONS (2)
  - Arthropathy [Unknown]
  - Drug ineffective [Unknown]
